FAERS Safety Report 5797184-X (Version None)
Quarter: 2008Q3

REPORT INFORMATION
  Report Type: 
  Country: None (occurrence: None)
  Receive Date: 20080701
  Receipt Date: 20080619
  Transmission Date: 20090109
  Serious: Yes (Other)
  Sender: FDA-Public Use
  Company Number: US-PFIZER INC-2008029287

PATIENT
  Sex: Male
  Weight: 87.727 kg

DRUGS (40)
  1. CHANTIX [Suspect]
     Indication: SMOKING CESSATION THERAPY
     Route: 048
     Dates: start: 20071201, end: 20080101
  2. AMBIEN [Concomitant]
  3. BUSPAR [Concomitant]
  4. CELEXA [Concomitant]
     Dosage: TEXT:EVERY DAY
  5. PLAVIX [Concomitant]
     Dosage: TEXT:EVERY DAY
  6. LANOXIN [Concomitant]
     Dosage: TEXT:EVERY DAY
  7. LASIX [Concomitant]
  8. LASIX [Concomitant]
  9. GUAIFENESIN [Concomitant]
  10. GUAIFENESIN [Concomitant]
  11. CODEINE [Concomitant]
  12. CODEINE [Concomitant]
  13. LORTAB [Concomitant]
  14. LORTAB [Concomitant]
  15. LACTULOSE [Concomitant]
  16. LACTULOSE [Concomitant]
  17. SYNTHROID [Concomitant]
     Dosage: TEXT:EVERY DAY
  18. SYNTHROID [Concomitant]
  19. LYRICA [Concomitant]
  20. LYRICA [Concomitant]
  21. CLARITIN [Concomitant]
     Dosage: TEXT:EVERY DAY
  22. CLARITIN [Concomitant]
  23. METOPROLOL TARTRATE [Concomitant]
  24. METOPROLOL TARTRATE [Concomitant]
  25. MORPHINE [Concomitant]
  26. MORPHINE [Concomitant]
  27. PRILOSEC [Concomitant]
  28. PRILOSEC [Concomitant]
  29. OXYCODONE HCL [Concomitant]
  30. OXYCODONE HCL [Concomitant]
  31. SIMVASTATIN [Concomitant]
     Indication: BLOOD CHOLESTEROL INCREASED
     Dosage: TEXT:EVERY DAY
  32. SIMVASTATIN [Concomitant]
  33. TOPAMAX [Concomitant]
  34. COUMADIN [Concomitant]
     Dosage: DAILY DOSE:2MG-TEXT:EVERY DAY
  35. ASPIRIN [Concomitant]
     Dosage: DAILY DOSE:81MG-TEXT:EVERY DAY
  36. VITAMIN CAP [Concomitant]
     Dosage: TEXT:DAILY
  37. POTASSIUM CHLORIDE [Concomitant]
     Dosage: TEXT:EVERY DAY
  38. GINKGO BILOBA [Concomitant]
     Dosage: TEXT:EVERY DAY
  39. CHONDROITIN/GLUCOSAMINE [Concomitant]
     Dosage: TEXT:EVERY DAY
  40. TOPROL-XL [Concomitant]
     Dosage: TEXT:EVERY DAY

REACTIONS (1)
  - SELF-INJURIOUS IDEATION [None]
